FAERS Safety Report 7319336-X (Version None)
Quarter: 2011Q1

REPORT INFORMATION
  Report Type: 
  Country: None (occurrence: None)
  Receive Date: 20110228
  Receipt Date: 20100203
  Transmission Date: 20110831
  Serious: No
  Sender: FDA-Public Use
  Company Number: A0843064A

PATIENT

DRUGS (2)
  1. LAMICTAL [Suspect]
     Route: 048
  2. NONE [Concomitant]

REACTIONS (1)
  - BLOOD GLUCOSE INCREASED [None]
